FAERS Safety Report 9172988 (Version 1)
Quarter: 2013Q1

REPORT INFORMATION
  Report Type: Spontaneous
  Country: US (occurrence: None)
  Receive Date: 20130319
  Receipt Date: 20130319
  Transmission Date: 20140127
  Serious: Yes (Disabling, Other)
  Sender: FDA-Public Use
  Company Number: None

PATIENT
  Age: 42 Year
  Sex: Male
  Weight: 88.45 kg

DRUGS (1)
  1. CIPRO 500MG [Suspect]
     Indication: PROSTATE INFECTION
     Route: 048
     Dates: start: 19920801, end: 19960801

REACTIONS (1)
  - Tendon disorder [None]
